FAERS Safety Report 11279255 (Version 2)
Quarter: 2015Q3

REPORT INFORMATION
  Report Type: Report from Study
  Country: US (occurrence: US)
  Receive Date: 20150717
  Receipt Date: 20150910
  Transmission Date: 20151125
  Serious: Yes (Hospitalization)
  Sender: FDA-Public Use
  Company Number: PHEH2015US013335

PATIENT
  Age: 15 Year
  Sex: Female

DRUGS (3)
  1. AFINITOR [Suspect]
     Active Substance: EVEROLIMUS
     Dosage: 5 MG, QOD
     Route: 048
  2. AFINITOR [Suspect]
     Active Substance: EVEROLIMUS
     Indication: ANGIOMYOLIPOMA
     Dosage: UNK
     Route: 048
  3. AFINITOR [Suspect]
     Active Substance: EVEROLIMUS
     Dosage: 7.5 MG, QD (DAILY)
     Route: 048
     Dates: start: 20150709

REACTIONS (4)
  - Malignant neoplasm progression [Unknown]
  - Abdominal pain [Unknown]
  - Appendicitis [Unknown]
  - Headache [Unknown]

NARRATIVE: CASE EVENT DATE: 20150520
